FAERS Safety Report 6537481-3 (Version None)
Quarter: 2010Q1

REPORT INFORMATION
  Report Type: 
  Country: None (occurrence: None)
  Receive Date: 20100114
  Receipt Date: 20100107
  Transmission Date: 20100710
  Serious: Yes (Other)
  Sender: FDA-Public Use
  Company Number: PHHY2010BR01149

PATIENT
  Age: 73 Year
  Sex: Female
  Weight: 53 kg

DRUGS (8)
  1. EXELON [Suspect]
     Indication: DEMENTIA ALZHEIMER'S TYPE
     Dosage: 9MG/5CM2, 1 PATCH EVERY 24 HOURS
     Route: 062
     Dates: start: 20080101, end: 20080101
  2. EXELON [Suspect]
     Dosage: 18MG/10CM2, 1 PATCH EVERY 24 HOURS
     Route: 062
     Dates: start: 20080101, end: 20091101
  3. EXELON [Suspect]
     Dosage: 27MG/15CM2, 1 PATCH EVERY 24 HOURS
     Route: 062
     Dates: start: 20091101
  4. MEMANTINE HCL [Concomitant]
     Dosage: 10 MG, Q12H
  5. ALENDRONATE SODIUM [Concomitant]
     Dosage: 70 MG, QW
  6. CALCIFEROL [Concomitant]
     Dosage: 2 DF, QD AT NIGHT
  7. SIMVASTATIN [Concomitant]
     Dosage: 1 TABLET AT NIGHT
  8. DORFLEX [Concomitant]
     Indication: PAIN
     Dosage: 1 DF, PRN

REACTIONS (8)
  - APPLICATION SITE ERYTHEMA [None]
  - APPLICATION SITE HYPERSENSITIVITY [None]
  - APPLICATION SITE PRURITUS [None]
  - DEMENTIA ALZHEIMER'S TYPE [None]
  - FEELING ABNORMAL [None]
  - NERVOUSNESS [None]
  - TREMOR [None]
  - VOMITING [None]
